FAERS Safety Report 10926497 (Version 1)
Quarter: 2015Q1

REPORT INFORMATION
  Report Type: Spontaneous
  Country: US (occurrence: US)
  Receive Date: 20150318
  Receipt Date: 20150318
  Transmission Date: 20150721
  Serious: Yes (Other)
  Sender: FDA-Public Use
  Company Number: US-ABBVIE-15P-163-1361517-00

PATIENT

DRUGS (2)
  1. LENALIDOMIDE [Suspect]
     Active Substance: LENALIDOMIDE
     Indication: NEOPLASM
     Dosage: DAILY FOR 28 DAYS
     Route: 048
  2. VALPROIC ACID. [Suspect]
     Active Substance: VALPROIC ACID
     Indication: NEOPLASM
     Dosage: DAILY ON A 7-DAY-ON, 7-DAY-OFF SCHEDULE
     Route: 048

REACTIONS (1)
  - Pulmonary embolism [Unknown]
